FAERS Safety Report 16731581 (Version 4)
Quarter: 2022Q1

REPORT INFORMATION
  Report Type: Spontaneous
  Country: GR (occurrence: GR)
  Receive Date: 20190822
  Receipt Date: 20220325
  Transmission Date: 20220423
  Serious: Yes (Death, Life-Threatening, Hospitalization, Other)
  Sender: FDA-Public Use
  Company Number: GR-GREOF-20190290

PATIENT
  Age: 26 Year
  Sex: Female
  Weight: 80 kg

DRUGS (6)
  1. REMICADE [Suspect]
     Active Substance: INFLIXIMAB
     Indication: Crohn^s disease
     Route: 042
     Dates: start: 20190527, end: 20190527
  2. salofalk [Concomitant]
     Route: 048
     Dates: start: 20100101, end: 20190527
  3. AZATHIOPRINE [Concomitant]
     Active Substance: AZATHIOPRINE
     Route: 048
     Dates: start: 20100101, end: 20190527
  4. FOLIC ACID [Concomitant]
     Active Substance: FOLIC ACID
     Route: 048
     Dates: start: 20100101, end: 20190527
  5. PREDNISOLONE [Concomitant]
     Active Substance: PREDNISOLONE
     Route: 048
     Dates: start: 20190430, end: 20190527
  6. METHYLPREDNISOLONE [Concomitant]
     Active Substance: METHYLPREDNISOLONE
     Route: 041
     Dates: start: 20190527, end: 20190527

REACTIONS (8)
  - Cerebral infarction [Fatal]
  - Brain stem haemorrhage [Fatal]
  - Brain stem haemorrhage [Fatal]
  - Headache [Unknown]
  - Vomiting [Unknown]
  - Gait disturbance [Unknown]
  - Infusion related reaction [Unknown]
  - Exposure during pregnancy [Recovered/Resolved]

NARRATIVE: CASE EVENT DATE: 20190527
